FAERS Safety Report 24327569 (Version 1)
Quarter: 2024Q3

REPORT INFORMATION
  Report Type: Spontaneous
  Country: US (occurrence: US)
  Receive Date: 20240917
  Receipt Date: 20240917
  Transmission Date: 20241016
  Serious: No
  Sender: ROCHE
  Company Number: US-ROCHE-10000082476

PATIENT

DRUGS (1)
  1. KADCYLA [Suspect]
     Active Substance: ADO-TRASTUZUMAB EMTANSINE
     Indication: Product used for unknown indication
     Dosage: TWO KADYLA 100 MG VIALS AND ONE KADCYLA 160 MG VIAL FOR A TOTAL DOSE OF 260MG
     Route: 065

REACTIONS (2)
  - Product preparation issue [Unknown]
  - No adverse event [Unknown]
